FAERS Safety Report 25674881 (Version 5)
Quarter: 2025Q4

REPORT INFORMATION
  Report Type: Report from Study
  Country: CA (occurrence: CA)
  Receive Date: 20250813
  Receipt Date: 20251209
  Transmission Date: 20260118
  Serious: Yes (Other)
  Sender: APOTEX
  Company Number: CA-PGRTD-E2B_07961164

PATIENT
  Age: 29 Year
  Sex: Female

DRUGS (2)
  1. GABAPENTIN [Suspect]
     Active Substance: GABAPENTIN
     Indication: Sacral pain
     Dosage: 100 MILLIGRAM, 1 EVERY 8 HOURS
  2. PEMBROLIZUMAB [Suspect]
     Active Substance: PEMBROLIZUMAB
     Indication: Neoplasm malignant
     Dosage: 200 MILLIGRAM, Q.3W

REACTIONS (8)
  - Haemorrhage [Recovered/Resolved]
  - Sacral pain [Recovered/Resolved]
  - Vascular access complication [Recovered/Resolved]
  - Sleep disorder [Recovered/Resolved]
  - Illness [Recovered/Resolved]
  - Heart rate increased [Recovered/Resolved]
  - Depressed level of consciousness [Recovered/Resolved]
  - Fatigue [Recovered/Resolved]
